FAERS Safety Report 15014207 (Version 1)
Quarter: 2018Q2

REPORT INFORMATION
  Report Type: Report from Study
  Country: NL (occurrence: NL)
  Receive Date: 20180615
  Receipt Date: 20180615
  Transmission Date: 20180711
  Serious: Yes (Other)
  Sender: FDA-Public Use
  Company Number: NL-SUN PHARMACEUTICAL INDUSTRIES LTD-2018RR-175743

PATIENT
  Age: 72 Year
  Sex: Male

DRUGS (3)
  1. OXALIPLATIN. [Suspect]
     Active Substance: OXALIPLATIN
     Indication: CHEMOTHERAPY
     Dosage: 130 MG/M2, ON DAY 1 OF EACH CYCLE
     Route: 065
  2. CAPECITABINE. [Suspect]
     Active Substance: CAPECITABINE
     Indication: CHEMOTHERAPY
     Dosage: 1650 MG, BID, 8 CYCLES, FROM DAY 57 AFTER LIVER RESECTION, DRUG DOSE DECREASED AFTER CICLE C4 AND C7
     Route: 065
  3. BEVACIZUMAB. [Suspect]
     Active Substance: BEVACIZUMAB
     Indication: CHEMOTHERAPY
     Dosage: 7.5 MG/KG, ON DAY 1 OF EACH CYCLE
     Route: 065

REACTIONS (13)
  - Fatigue [Unknown]
  - Weight decreased [Unknown]
  - Muscle spasms [Unknown]
  - Dysgeusia [Unknown]
  - Hypersensitivity [Unknown]
  - Nausea [Unknown]
  - Libido disorder [Unknown]
  - Diarrhoea [Unknown]
  - Neuropathy peripheral [Unknown]
  - Dyspepsia [Unknown]
  - Decreased appetite [Unknown]
  - Palmar-plantar erythrodysaesthesia syndrome [Unknown]
  - Vomiting [Unknown]
